FAERS Safety Report 17509993 (Version 1)
Quarter: 2020Q1

REPORT INFORMATION
  Report Type: Spontaneous
  Country: GB (occurrence: GB)
  Receive Date: 20200306
  Receipt Date: 20200306
  Transmission Date: 20200409
  Serious: Yes (Life-Threatening, Hospitalization, Other)
  Sender: FDA-Public Use
  Company Number: GB-TEVA-2020-GB-1195287

PATIENT
  Age: 51 Year
  Sex: Female
  Weight: 65 kg

DRUGS (4)
  1. METHOTREXATE SODIUM. [Suspect]
     Active Substance: METHOTREXATE SODIUM
     Dosage: 2.5 MG 1 WEEKS
     Route: 048
     Dates: end: 20191204
  2. ATORVASTATIN [Concomitant]
     Active Substance: ATORVASTATIN
  3. LINAGLIPTIN [Concomitant]
     Active Substance: LINAGLIPTIN
  4. METHOTREXATE SODIUM. [Suspect]
     Active Substance: METHOTREXATE SODIUM
     Indication: OCULAR SARCOIDOSIS
     Dosage: 12.5 MG 1 WEEKS
     Route: 048
     Dates: start: 20191205, end: 20191218

REACTIONS (2)
  - Malaise [Recovered/Resolved]
  - Neutropenic sepsis [Recovered/Resolved]

NARRATIVE: CASE EVENT DATE: 20191218
